FAERS Safety Report 8800384 (Version 2)
Quarter: 2012Q4

REPORT INFORMATION
  Report Type: 
  Country: JP (occurrence: JP)
  Receive Date: 20120921
  Receipt Date: 20121001
  Transmission Date: 20130627
  Serious: Yes (Hospitalization)
  Sender: FDA-Public Use
  Company Number: JP-CELGENEUS-087-21660-12092114

PATIENT
  Age: 57 Year
  Sex: Female
  Weight: 49 kg

DRUGS (5)
  1. ABRAXANE [Suspect]
     Indication: BREAST CANCER METASTATIC
     Route: 050
     Dates: start: 20110419
  2. ABRAXANE [Suspect]
     Dosage: 406.9 Milligram
     Route: 050
     Dates: start: 20120710, end: 20120731
  3. ABRAXANE [Suspect]
     Route: 050
     Dates: end: 20120920
  4. ZOMETA [Concomitant]
     Indication: BREAST CANCER METASTATIC
     Dosage: 4 Milligram
     Route: 065
     Dates: start: 20110419, end: 20110731
  5. FURTULON [Concomitant]
     Indication: DRUG USE FOR UNKNOWN INDICATION
     Route: 065

REACTIONS (1)
  - Hepatic function abnormal [Recovering/Resolving]
